FAERS Safety Report 14559675 (Version 16)
Quarter: 2020Q1

REPORT INFORMATION
  Report Type: Report from Study
  Country: US (occurrence: US)
  Receive Date: 20180221
  Receipt Date: 20200219
  Transmission Date: 20200409
  Serious: Yes (Hospitalization, Disabling, Other)
  Sender: FDA-Public Use
  Company Number: US-MALLINCKRODT-T201705536

PATIENT
  Age: 49 Year
  Sex: Male
  Weight: 154 kg

DRUGS (22)
  1. PREDNISONE. [Suspect]
     Active Substance: PREDNISONE
     Dosage: 5 MILLIGRAM
     Route: 065
  2. REPOSITORY CORTICOTROPIN INJECTION [Suspect]
     Active Substance: CORTICOTROPIN
     Dosage: 80 UNITS/1 ML, EVERY 3 DAYS / EVERY 72 HOURS
     Route: 030
     Dates: start: 2018
  3. REPOSITORY CORTICOTROPIN INJECTION [Suspect]
     Active Substance: CORTICOTROPIN
     Dosage: 40 UNITS/0.5ML, EVERY 3 DAYS / EVERY 72 HOURS
     Route: 030
  4. CELLCEPT [Concomitant]
     Active Substance: MYCOPHENOLATE MOFETIL\MYCOPHENOLATE MOFETIL HYDROCHLORIDE
     Indication: PRODUCT USED FOR UNKNOWN INDICATION
     Dosage: UNK
     Route: 065
  5. REPOSITORY CORTICOTROPIN INJECTION [Suspect]
     Active Substance: CORTICOTROPIN
     Dosage: 40 UNITS / 0.5 ML, EVERY 3 DAYS / EVERY 72 HOURS
     Route: 030
     Dates: end: 20190204
  6. PREDNISONE. [Suspect]
     Active Substance: PREDNISONE
     Indication: PRODUCT USED FOR UNKNOWN INDICATION
     Dosage: UNK
     Route: 065
  7. PREDNISONE. [Suspect]
     Active Substance: PREDNISONE
     Dosage: 50 MILLIGRAM
     Route: 065
  8. REPOSITORY CORTICOTROPIN INJECTION [Suspect]
     Active Substance: CORTICOTROPIN
     Dosage: 80 UNITS/1 ML, EVERY 3 DAYS / EVERY 72 HOURS
     Route: 030
  9. REPOSITORY CORTICOTROPIN INJECTION [Suspect]
     Active Substance: CORTICOTROPIN
     Dosage: 40 UNITS / 0.5 ML, EVERY 3 DAYS / EVERY 72 HOURS
     Route: 030
  10. PREDNISONE. [Suspect]
     Active Substance: PREDNISONE
     Dosage: UNK (DECREASED DOSE)
     Route: 065
  11. REMICADE [Concomitant]
     Active Substance: INFLIXIMAB
     Indication: PRODUCT USED FOR UNKNOWN INDICATION
     Dosage: UNK
     Route: 065
  12. REPOSITORY CORTICOTROPIN INJECTION [Suspect]
     Active Substance: CORTICOTROPIN
     Dosage: 40 UNITS/0.5 ML,  EVERY 3 DAYS / EVERY 72 HOURS
     Route: 030
     Dates: start: 2018, end: 2018
  13. PREDNISONE. [Suspect]
     Active Substance: PREDNISONE
     Dosage: 80 MILLIGRAM
     Route: 065
  14. CELLCEPT [Concomitant]
     Active Substance: MYCOPHENOLATE MOFETIL\MYCOPHENOLATE MOFETIL HYDROCHLORIDE
     Dosage: UNK
     Route: 065
  15. REPOSITORY CORTICOTROPIN INJECTION [Suspect]
     Active Substance: CORTICOTROPIN
     Indication: SARCOIDOSIS
     Dosage: 40 UNITS/0.5 ML, EVERY 3 DAYS / EVERY 72 HOURS
     Route: 030
     Dates: start: 20161221
  16. REPOSITORY CORTICOTROPIN INJECTION [Suspect]
     Active Substance: CORTICOTROPIN
     Dosage: 32 UNITS / 0.4 ML, EVERY 3 DAYS / EVERY 72 HOURS
     Route: 030
     Dates: start: 20190406, end: 2019
  17. REPOSITORY CORTICOTROPIN INJECTION [Suspect]
     Active Substance: CORTICOTROPIN
     Dosage: 40 UNITS / 0.5 ML, EVERY 3 DAYS / EVERY 72 HOURS
     Route: 030
     Dates: start: 2019
  18. REPOSITORY CORTICOTROPIN INJECTION [Suspect]
     Active Substance: CORTICOTROPIN
     Dosage: 40 UNITS / 0.5 ML, EVERY 3 DAYS / EVERY 72 HOURS
     Route: 030
  19. METHOTREXATE. [Suspect]
     Active Substance: METHOTREXATE
     Indication: PRODUCT USED FOR UNKNOWN INDICATION
     Dosage: UNK
     Route: 065
  20. METHOTREXATE. [Suspect]
     Active Substance: METHOTREXATE
     Dosage: UNK
     Route: 065
  21. PREDNISONE. [Suspect]
     Active Substance: PREDNISONE
     Dosage: 20 MILLIGRAM
     Route: 065
  22. PREDNISONE. [Suspect]
     Active Substance: PREDNISONE
     Dosage: 2 MILLIGRAM
     Route: 065

REACTIONS (42)
  - Condition aggravated [Unknown]
  - Knee arthroplasty [Unknown]
  - Neuropathy peripheral [Unknown]
  - Skin haemorrhage [Unknown]
  - Feeling abnormal [Unknown]
  - Depression [Unknown]
  - Vertigo [Not Recovered/Not Resolved]
  - Hunger [Unknown]
  - Dyspnoea [Unknown]
  - Cataract [Unknown]
  - Malaise [Unknown]
  - Sarcoidosis [Unknown]
  - Cataract operation [Unknown]
  - Joint swelling [Unknown]
  - Underdose [Unknown]
  - Osteochondritis [Not Recovered/Not Resolved]
  - Ascites [Unknown]
  - Inflammatory marker increased [Unknown]
  - Musculoskeletal chest pain [Unknown]
  - Splenomegaly [Unknown]
  - Exploratory operation [Unknown]
  - Abdominal pain [Unknown]
  - Feeling jittery [Unknown]
  - Abdominal distension [Unknown]
  - Injection site reaction [Recovering/Resolving]
  - Diabetes mellitus [Unknown]
  - Pain [Unknown]
  - Pancreatic enzymes increased [Unknown]
  - Weight increased [Unknown]
  - Intentional device misuse [Unknown]
  - Product dose omission [Not Recovered/Not Resolved]
  - Pneumothorax [Unknown]
  - Vitreous floaters [Unknown]
  - Eye disorder [Unknown]
  - Blood iron decreased [Unknown]
  - Skin lesion [Unknown]
  - Insomnia [Recovering/Resolving]
  - Vomiting [Unknown]
  - Disability [Unknown]
  - Nephrolithiasis [Unknown]
  - Protein total increased [Unknown]
  - Infection [Unknown]

NARRATIVE: CASE EVENT DATE: 20191008
